FAERS Safety Report 16801537 (Version 1)
Quarter: 2019Q3

REPORT INFORMATION
  Report Type: Spontaneous
  Country: US (occurrence: US)
  Receive Date: 20190912
  Receipt Date: 20190912
  Transmission Date: 20191005
  Serious: No
  Sender: FDA-Public Use
  Company Number: US-AMNEAL PHARMACEUTICALS-2019AMN00178

PATIENT
  Sex: Female
  Weight: 79.38 kg

DRUGS (14)
  1. GABAPENTIN. [Suspect]
     Active Substance: GABAPENTIN
     Dosage: 300 MG, 3X/DAY, 300 MG CAPSULES IN MORNING AND 600MG AT NIGHT
     Route: 065
  2. PROLIA [Concomitant]
     Active Substance: DENOSUMAB
     Indication: BONE DISORDER
     Dosage: SHOT EVERY SIX MONTHS
  3. THYROID PILL [Concomitant]
     Indication: PRODUCT USED FOR UNKNOWN INDICATION
     Dosage: UNK
  4. TOVIAZ [Concomitant]
     Active Substance: FESOTERODINE FUMARATE
     Indication: PRODUCT USED FOR UNKNOWN INDICATION
     Dosage: UNK
  5. VITAMINS [Concomitant]
     Active Substance: VITAMINS
     Indication: PRODUCT USED FOR UNKNOWN INDICATION
     Dosage: UNK
  6. ALPRAZOL [Concomitant]
     Indication: PRODUCT USED FOR UNKNOWN INDICATION
     Dosage: 1 MG, 1X/DAY
  7. PRAVASTATIN. [Concomitant]
     Active Substance: PRAVASTATIN
     Indication: DYSPEPSIA
     Dosage: 40 MG
  8. GABAPENTIN. [Suspect]
     Active Substance: GABAPENTIN
     Indication: HEREDITARY MOTOR AND SENSORY NEUROPATHY
     Dosage: 300 MG, 2X/DAY, ONE AT MORNING AND ONE AT NIGHT
     Route: 065
  9. LYRICA [Concomitant]
     Active Substance: PREGABALIN
     Indication: PRODUCT USED FOR UNKNOWN INDICATION
     Dosage: UNK
  10. CITALOPRAM [Concomitant]
     Active Substance: CITALOPRAM HYDROBROMIDE
     Indication: ANXIETY
     Dosage: 20 MG, 1X/DAY, ONE AT NIGHT
     Dates: start: 2007
  11. PRAVASTATIN. [Concomitant]
     Active Substance: PRAVASTATIN
     Indication: GASTROOESOPHAGEAL REFLUX DISEASE
  12. LANSOPRAZOLE. [Concomitant]
     Active Substance: LANSOPRAZOLE
     Indication: PRODUCT USED FOR UNKNOWN INDICATION
  13. CALCIUM [Concomitant]
     Active Substance: CALCIUM
     Indication: BONE DISORDER
     Dosage: UNK
  14. BACLOFEN. [Concomitant]
     Active Substance: BACLOFEN
     Indication: PRODUCT USED FOR UNKNOWN INDICATION
     Dosage: 10 MG, 1X/DAY, ONCE IN THE PM

REACTIONS (1)
  - Drug ineffective for unapproved indication [Unknown]
